FAERS Safety Report 22093421 (Version 1)
Quarter: 2023Q1

REPORT INFORMATION
  Report Type: Spontaneous
  Country: US (occurrence: None)
  Receive Date: 20230313
  Receipt Date: 20230313
  Transmission Date: 20230418
  Serious: Yes (Other)
  Sender: FDA-Public Use
  Company Number: None

PATIENT
  Age: 46 Year
  Sex: Male
  Weight: 94.5 kg

DRUGS (7)
  1. VIIBRYD [Suspect]
     Active Substance: VILAZODONE HYDROCHLORIDE
     Indication: Depression
     Route: 048
     Dates: start: 20230102, end: 20230227
  2. VIIBRYD [Suspect]
     Active Substance: VILAZODONE HYDROCHLORIDE
     Indication: Anxiety
  3. Losarton [Concomitant]
  4. Carvidelol [Concomitant]
  5. CARDIZEM [Concomitant]
     Active Substance: DILTIAZEM HYDROCHLORIDE
  6. VIIBRYD [Concomitant]
     Active Substance: VILAZODONE HYDROCHLORIDE
  7. XYOSTED [Concomitant]
     Active Substance: TESTOSTERONE ENANTHATE

REACTIONS (4)
  - Suicidal ideation [None]
  - Anxiety [None]
  - Depression [None]
  - Product substitution issue [None]

NARRATIVE: CASE EVENT DATE: 20230202
